FAERS Safety Report 6691985-1 (Version None)
Quarter: 2010Q2

REPORT INFORMATION
  Report Type: 
  Country: None (occurrence: None)
  Receive Date: 20100422
  Receipt Date: 20100413
  Transmission Date: 20101027
  Serious: Yes (Hospitalization)
  Sender: FDA-Public Use
  Company Number: US-ROCHE-698147

PATIENT
  Sex: Male

DRUGS (3)
  1. MYCOPHENOLATE MOFETIL [Suspect]
     Route: 048
     Dates: start: 20050706
  2. CYCLOSPORINE [Suspect]
     Route: 048
     Dates: start: 20050705
  3. PREDNISONE [Suspect]
     Route: 048
     Dates: start: 20050710

REACTIONS (3)
  - PERINEPHRIC EFFUSION [None]
  - TRANSPLANT REJECTION [None]
  - WOUND INFECTION [None]
